FAERS Safety Report 20331154 (Version 1)
Quarter: 2022Q1

REPORT INFORMATION
  Report Type: Spontaneous
  Country: US (occurrence: None)
  Receive Date: 20220112
  Receipt Date: 20220112
  Transmission Date: 20220423
  Serious: No
  Sender: FDA-Public Use
  Company Number: None

PATIENT
  Sex: Female

DRUGS (1)
  1. HUMIRA [Suspect]
     Active Substance: ADALIMUMAB
     Indication: Iridocyclitis
     Dosage: FREQUENCY : WEEKLY;?
     Route: 058

REACTIONS (5)
  - Sciatica [None]
  - Gait inability [None]
  - Osteoarthritis [None]
  - Joint noise [None]
  - Arthropathy [None]
